FAERS Safety Report 23784517 (Version 2)
Quarter: 2024Q2

REPORT INFORMATION
  Report Type: Report from Study
  Country: CL (occurrence: CL)
  Receive Date: 20240425
  Receipt Date: 20240601
  Transmission Date: 20240716
  Serious: Yes (Other)
  Sender: FDA-Public Use
  Company Number: CL-JNJFOC-20240466752

PATIENT
  Age: 63 Year
  Sex: Female

DRUGS (1)
  1. SIMPONI [Suspect]
     Active Substance: GOLIMUMAB
     Indication: Rheumatoid arthritis
     Route: 058
     Dates: start: 20230613

REACTIONS (6)
  - Rib fracture [Unknown]
  - Breast injury [Unknown]
  - Dyspepsia [Unknown]
  - Stress [Unknown]
  - Nasopharyngitis [Unknown]
  - Treatment noncompliance [Unknown]
